FAERS Safety Report 10265129 (Version 3)
Quarter: 2015Q1

REPORT INFORMATION
  Report Type: Spontaneous
  Country: SE (occurrence: SE)
  Receive Date: 20140627
  Receipt Date: 20150316
  Transmission Date: 20150720
  Serious: Yes (Hospitalization)
  Sender: FDA-Public Use
  Company Number: SE-TEVA-490907ISR

PATIENT
  Age: 47 Year
  Sex: Male

DRUGS (1)
  1. DOXYFERM [Suspect]
     Active Substance: DOXYCYCLINE
     Indication: RESPIRATORY TRACT INFECTION
     Dosage: 100 MILLIGRAM DAILY;
     Dates: start: 20140117, end: 20140120

REACTIONS (3)
  - Pulmonary embolism [Recovered/Resolved]
  - General physical health deterioration [Unknown]
  - Hypersensitivity [Unknown]

NARRATIVE: CASE EVENT DATE: 20140121
